FAERS Safety Report 6011503-0 (Version None)
Quarter: 2008Q4

REPORT INFORMATION
  Report Type: 
  Country: None (occurrence: None)
  Receive Date: 20081218
  Receipt Date: 20010719
  Transmission Date: 20090506
  Serious: Yes (Death, Hospitalization, Other)
  Sender: FDA-Public Use
  Company Number: JP-ROCHE-87849

PATIENT
  Sex: Male

DRUGS (7)
  1. VESANOID [Suspect]
     Indication: ACUTE PROMYELOCYTIC LEUKAEMIA
     Route: 048
     Dates: start: 19970708, end: 19970804
  2. VESANOID [Interacting]
     Route: 048
     Dates: start: 19970922, end: 19970928
  3. DIFLUCAN [Interacting]
     Indication: FUNGAL INFECTION
     Route: 048
     Dates: start: 19970802, end: 19970804
  4. KEITEN [Concomitant]
     Indication: SEPSIS
     Route: 041
     Dates: start: 19970730, end: 19970805
  5. EXACIN [Concomitant]
     Indication: SEPSIS
     Route: 041
     Dates: start: 19970730, end: 19970805
  6. ARABINOSYL CYTOSINE [Concomitant]
  7. DAUNOMYCIN [Concomitant]

REACTIONS (10)
  - ATRIAL FIBRILLATION [None]
  - ATRIOVENTRICULAR BLOCK COMPLETE [None]
  - CENTRAL NERVOUS SYSTEM LEUKAEMIA [None]
  - DEATH [None]
  - DISSEMINATED INTRAVASCULAR COAGULATION [None]
  - DRUG INTERACTION [None]
  - HEADACHE [None]
  - PARALYSIS [None]
  - SEPSIS [None]
  - VOMITING [None]
